FAERS Safety Report 5381131-9 (Version None)
Quarter: 2007Q3

REPORT INFORMATION
  Report Type: 
  Country: None (occurrence: None)
  Receive Date: 20070706
  Receipt Date: 20070625
  Transmission Date: 20080115
  Serious: Yes (Other)
  Sender: FDA-Public Use
  Company Number: US-PFIZER INC-2007042355

PATIENT
  Sex: Male

DRUGS (5)
  1. LIPITOR [Suspect]
     Indication: CORONARY ARTERY DISEASE
     Dosage: DAILY DOSE:80MG
  2. LOPRESSOR [Concomitant]
  3. ASPIRIN [Concomitant]
     Dosage: DAILY DOSE:325MG
  4. PLAVIX [Concomitant]
     Dosage: DAILY DOSE:75MG
  5. LISINOPRIL [Concomitant]

REACTIONS (1)
  - WEIGHT DECREASED [None]
